FAERS Safety Report 14253014 (Version 1)
Quarter: 2017Q4

REPORT INFORMATION
  Report Type: Spontaneous
  Country: JP (occurrence: JP)
  Receive Date: 20171205
  Receipt Date: 20171205
  Transmission Date: 20180321
  Serious: Yes (Hospitalization, Other)
  Sender: FDA-Public Use
  Company Number: JP-BAYER-2017-190785

PATIENT
  Age: 76 Year
  Sex: Male
  Weight: 56 kg

DRUGS (6)
  1. BAYASPIRIN 100 MG [Suspect]
     Active Substance: ASPIRIN
     Dosage: DAILY DOSE 100 MG
     Dates: start: 20170918, end: 20171005
  2. TRAZENTA [Concomitant]
     Active Substance: LINAGLIPTIN
     Dosage: DAILY DOSE 5 MG
     Dates: start: 20170922
  3. CRESTOR [Concomitant]
     Active Substance: ROSUVASTATIN CALCIUM
     Dosage: DAILY DOSE 2.5 MG
     Dates: start: 20170921
  4. CLOPIDOGREL [Interacting]
     Active Substance: CLOPIDOGREL BISULFATE
     Dosage: DAILY DOSE 75 MG
     Dates: start: 20170923
  5. ARTIST [Concomitant]
     Active Substance: CARVEDILOL
     Dosage: 2.5MG DAILY
     Dates: start: 20170918, end: 20170926
  6. XARELTO [Interacting]
     Active Substance: RIVAROXABAN
     Indication: PULMONARY EMBOLISM
     Dosage: 30MG DAILY
     Route: 048
     Dates: start: 20170922

REACTIONS (6)
  - Labelled drug-drug interaction medication error [None]
  - Duodenal ulcer [Recovering/Resolving]
  - Drug interaction [None]
  - Haemoglobin decreased [Recovering/Resolving]
  - Gastrointestinal haemorrhage [Recovering/Resolving]
  - Faeces discoloured [Recovering/Resolving]

NARRATIVE: CASE EVENT DATE: 201709
